FAERS Safety Report 25300516 (Version 1)
Quarter: 2025Q2

REPORT INFORMATION
  Report Type: Spontaneous
  Country: US (occurrence: None)
  Receive Date: 20250512
  Receipt Date: 20250512
  Transmission Date: 20250717
  Serious: Yes (Hospitalization, Other)
  Sender: INCYTE
  Company Number: US-INCYTE CORPORATION-2025IN004968

PATIENT

DRUGS (1)
  1. JAKAFI [Suspect]
     Active Substance: RUXOLITINIB
     Indication: Polycythaemia vera
     Dosage: 25 MILLIGRAM, QD

REACTIONS (6)
  - Myocardial infarction [Unknown]
  - Pulmonary embolism [Unknown]
  - Leukaemia [Unknown]
  - Cerebrovascular accident [Unknown]
  - Coagulopathy [Unknown]
  - Drug ineffective [Unknown]
